FAERS Safety Report 5948978-9 (Version None)
Quarter: 2008Q4

REPORT INFORMATION
  Report Type: 
  Country: None (occurrence: None)
  Receive Date: 20081111
  Receipt Date: 20081030
  Transmission Date: 20090506
  Serious: Yes (Other)
  Sender: FDA-Public Use
  Company Number: FR-PFIZER INC-2004213805FR

PATIENT
  Sex: Female
  Weight: 68 kg

DRUGS (7)
  1. EXEMESTANE [Suspect]
     Indication: BREAST CANCER FEMALE
     Route: 048
     Dates: start: 20020717, end: 20040403
  2. LEVOTHYROX [Concomitant]
     Indication: HYPOTHYROIDISM
     Route: 048
     Dates: start: 19950101
  3. IDEOS [Concomitant]
     Indication: OSTEOPOROSIS
     Route: 048
  4. APROVEL [Concomitant]
     Indication: HYPERTENSION
     Route: 048
     Dates: start: 19950101
  5. KARDEGIC [Concomitant]
     Indication: VENOUS INSUFFICIENCY
     Route: 048
     Dates: start: 19870101
  6. ENDOTELON [Concomitant]
     Route: 048
     Dates: start: 20000101
  7. EUPHYTOSE [Concomitant]
     Indication: ANXIETY
     Route: 048

REACTIONS (1)
  - PHLEBITIS [None]
